FAERS Safety Report 15568005 (Version 1)
Quarter: 2018Q4

REPORT INFORMATION
  Report Type: Report from Study
  Country: US (occurrence: US)
  Receive Date: 20181030
  Receipt Date: 20181030
  Transmission Date: 20190205
  Serious: No
  Sender: FDA-Public Use
  Company Number: US-BIOVERATIV-2018BV000737

PATIENT
  Sex: Male

DRUGS (1)
  1. ALPROLIX [Suspect]
     Active Substance: EFTRENONACOG ALFA
     Indication: FACTOR IX DEFICIENCY
     Dosage: MONDAYS AND FRIDAYS
     Route: 042
     Dates: start: 20160101

REACTIONS (3)
  - Haemorrhage [Recovered/Resolved]
  - Depression [Not Recovered/Not Resolved]
  - Pain [Unknown]
